FAERS Safety Report 5371465-6 (Version None)
Quarter: 2007Q2

REPORT INFORMATION
  Report Type: 
  Country: None (occurrence: None)
  Receive Date: 20070622
  Receipt Date: 20070608
  Transmission Date: 20071010
  Serious: Yes (Hospitalization)
  Sender: FDA-Public Use
  Company Number: APP200700187

PATIENT
  Age: 4 Month

DRUGS (1)
  1. CALCIUM GLUCONATE [Suspect]
     Indication: DRUG USE FOR UNKNOWN INDICATION
     Dosage: TEN FOLD DOSING ERROR, INJECTION
     Dates: start: 20070601

REACTIONS (3)
  - HYPERCALCAEMIA [None]
  - INCORRECT DOSE ADMINISTERED [None]
  - OVERDOSE [None]
